FAERS Safety Report 7545226-3 (Version None)
Quarter: 2011Q2

REPORT INFORMATION
  Report Type: 
  Country: None (occurrence: None)
  Receive Date: 20110614
  Receipt Date: 20110602
  Transmission Date: 20111010
  Serious: Yes (Other)
  Sender: FDA-Public Use
  Company Number: US-JNJFOC-20110409783

PATIENT
  Sex: Male
  Weight: 111.13 kg

DRUGS (3)
  1. HYDROCHLOROTHIAZIDE [Concomitant]
     Indication: HYPERTENSION
     Route: 048
  2. METFORMIN HCL [Concomitant]
     Indication: DIABETES MELLITUS
     Route: 048
  3. STELARA [Suspect]
     Indication: PSORIASIS
     Route: 058
     Dates: start: 20100101, end: 20100101

REACTIONS (3)
  - PSORIASIS [None]
  - NEUROPATHY PERIPHERAL [None]
  - DRUG INEFFECTIVE [None]
